FAERS Safety Report 4783638-1 (Version None)
Quarter: 2005Q3

REPORT INFORMATION
  Report Type: 
  Country: None (occurrence: None)
  Receive Date: 20050928
  Receipt Date: 20050912
  Transmission Date: 20060218
  Serious: Yes (Other)
  Sender: FDA-Public Use
  Company Number: GBS050617694

PATIENT
  Age: 44 Year
  Sex: Male
  Weight: 95 kg

DRUGS (2)
  1. FLUOXETINE HCL [Suspect]
     Indication: DEPRESSION
     Dosage: 20 MG
     Dates: start: 20041122, end: 20050724
  2. MOMETASONE [Concomitant]

REACTIONS (5)
  - BLOOD ALBUMIN INCREASED [None]
  - FATIGUE [None]
  - HEPATIC STEATOSIS [None]
  - HEPATITIS [None]
  - PROTEIN TOTAL INCREASED [None]
